FAERS Safety Report 9969227 (Version 1)
Quarter: 2014Q1

REPORT INFORMATION
  Report Type: Report from Study
  Country: US (occurrence: US)
  Receive Date: 20140306
  Receipt Date: 20140306
  Transmission Date: 20141002
  Serious: Yes (Death)
  Sender: FDA-Public Use
  Company Number: US-ROCHE-1331348

PATIENT
  Sex: Female

DRUGS (8)
  1. ACTEMRA [Suspect]
     Indication: RHEUMATOID ARTHRITIS
     Route: 042
  2. ENBREL [Concomitant]
  3. HUMIRA [Concomitant]
  4. CIMZIA [Concomitant]
  5. REMICADE [Concomitant]
  6. ORENCIA [Concomitant]
  7. METHOTREXATE [Concomitant]
  8. CELEBREX [Concomitant]

REACTIONS (1)
  - Death [Fatal]
